FAERS Safety Report 4322903-9 (Version None)
Quarter: 2004Q1

REPORT INFORMATION
  Report Type: 
  Country: None (occurrence: None)
  Receive Date: 20040324
  Receipt Date: 20040318
  Transmission Date: 20041129
  Serious: Yes (Death, Disabling)
  Sender: FDA-Public Use
  Company Number: WAES 0403MYS00005

PATIENT
  Age: 45 Year
  Sex: Female
  Weight: 70 kg

DRUGS (6)
  1. AMPHOTERICIN B [Concomitant]
     Indication: SYSTEMIC CANDIDA
     Route: 042
     Dates: start: 20040311, end: 20040318
  2. CASPOFUNGIN ACETATE [Suspect]
     Indication: SYSTEMIC CANDIDA
     Route: 041
     Dates: start: 20040317, end: 20040318
  3. CIPROFLOXACIN [Concomitant]
     Indication: ACINETOBACTER INFECTION
     Route: 042
     Dates: start: 20040316, end: 20040318
  4. DOPAMINE HYDROCHLORIDE [Concomitant]
     Indication: HYPOTENSION
     Route: 042
     Dates: start: 20040316, end: 20040318
  5. NETILMICIN SULFATE [Concomitant]
     Indication: ACINETOBACTER INFECTION
     Route: 042
     Dates: start: 20040312, end: 20040318
  6. PIPERACILLIN SODIUM AND TAZOBACTAM SODIUM [Concomitant]
     Indication: ACINETOBACTER INFECTION
     Route: 042
     Dates: start: 20040317, end: 20040318

REACTIONS (2)
  - ACINETOBACTER INFECTION [None]
  - CANDIDA SEPSIS [None]
